FAERS Safety Report 18979947 (Version 1)
Quarter: 2021Q1

REPORT INFORMATION
  Report Type: Spontaneous
  Country: TH (occurrence: TH)
  Receive Date: 20210308
  Receipt Date: 20210308
  Transmission Date: 20210420
  Serious: Yes (Life-Threatening, Other)
  Sender: FDA-Public Use
  Company Number: TH-ACCORD-218568

PATIENT
  Age: 78 Year
  Sex: Male

DRUGS (3)
  1. OXALIPLATIN. [Suspect]
     Active Substance: OXALIPLATIN
     Indication: COLORECTAL CANCER RECURRENT
  2. FOLINIC ACID [Suspect]
     Active Substance: LEUCOVORIN
     Indication: COLORECTAL CANCER RECURRENT
  3. FLUOROURACIL. [Suspect]
     Active Substance: FLUOROURACIL
     Indication: COLORECTAL CANCER RECURRENT
     Dosage: 400 MG/M^2 BOLUS AND 1200 MG/M^2 CONTINUOUS INTRAVENOUS INFUSION
     Route: 042

REACTIONS (3)
  - Nephropathy toxic [Recovering/Resolving]
  - Lactic acidosis [Recovering/Resolving]
  - Toxic encephalopathy [Recovering/Resolving]
